FAERS Safety Report 22119946 (Version 1)
Quarter: 2023Q1

REPORT INFORMATION
  Report Type: Spontaneous
  Country: US (occurrence: US)
  Receive Date: 20230321
  Receipt Date: 20230321
  Transmission Date: 20230417
  Serious: No
  Sender: FDA-Public Use
  Company Number: US-AMGEN-USASP2023043788

PATIENT
  Age: 50 Year
  Sex: Male

DRUGS (2)
  1. RIABNI [Suspect]
     Active Substance: RITUXIMAB-ARRX
     Indication: Immune thrombocytopenia
     Dosage: 750 MILLIGRAM, Q4WK
     Route: 042
     Dates: start: 20230203
  2. RIABNI [Suspect]
     Active Substance: RITUXIMAB-ARRX
     Indication: Off label use
     Dosage: 750 MILLIGRAM, Q4WK
     Route: 042

REACTIONS (2)
  - SARS-CoV-2 test positive [Recovering/Resolving]
  - Off label use [Unknown]

NARRATIVE: CASE EVENT DATE: 20230203
